FAERS Safety Report 5479438-X (Version None)
Quarter: 2007Q4

REPORT INFORMATION
  Report Type: 
  Country: None (occurrence: None)
  Receive Date: 20071008
  Receipt Date: 20070928
  Transmission Date: 20080405
  Serious: Yes (Other)
  Sender: FDA-Public Use
  Company Number: PHRM2007FR02305

PATIENT

DRUGS (1)
  1. TRILEPTAL [Suspect]
     Route: 048

REACTIONS (2)
  - ALCOHOL POISONING [None]
  - DRUG TOXICITY [None]
